FAERS Safety Report 5133791-5 (Version None)
Quarter: 2006Q4

REPORT INFORMATION
  Report Type: 
  Country: None (occurrence: None)
  Receive Date: 20061018
  Receipt Date: 20061011
  Transmission Date: 20070319
  Serious: Yes (Other)
  Sender: FDA-Public Use
  Company Number: 148594USA

PATIENT
  Age: 67 Year
  Sex: Female

DRUGS (2)
  1. TAMOXIFEN TABLETS, 10MG, 20MG (TAMOXIFEN) [Suspect]
     Indication: BREAST CANCER
  2. TAMOXIFEN TABLETS, 10MG, 20MG (TAMOXIFEN) [Suspect]
     Indication: METASTASES TO BONE

REACTIONS (3)
  - DRUG TOXICITY [None]
  - HYPERSENSITIVITY [None]
  - VASCULITIS [None]
